FAERS Safety Report 25838806 (Version 1)
Quarter: 2025Q3

REPORT INFORMATION
  Report Type: Report from Study
  Country: US (occurrence: US)
  Receive Date: 20250924
  Receipt Date: 20250924
  Transmission Date: 20251020
  Serious: Yes (Other)
  Sender: ABBVIE
  Company Number: US-ABBVIE-6463295

PATIENT
  Age: 53 Year
  Sex: Female

DRUGS (1)
  1. QULIPTA [Suspect]
     Active Substance: ATOGEPANT
     Indication: Migraine
     Route: 048
     Dates: start: 20250912

REACTIONS (7)
  - Brain neoplasm [Unknown]
  - Drug ineffective [Not Recovered/Not Resolved]
  - Illness [Recovering/Resolving]
  - Migraine [Not Recovered/Not Resolved]
  - Feeding disorder [Unknown]
  - Seizure [Unknown]
  - Anxiety [Unknown]

NARRATIVE: CASE EVENT DATE: 20250901
